FAERS Safety Report 9900143 (Version 2)
Quarter: 2014Q1

REPORT INFORMATION
  Report Type: Spontaneous
  Country: NZ (occurrence: NZ)
  Receive Date: 20140214
  Receipt Date: 20140214
  Transmission Date: 20141002
  Serious: Yes (Life-Threatening, Other)
  Sender: FDA-Public Use
  Company Number: NZ-ABBVIE-13P-118-1139672-00

PATIENT
  Sex: Female

DRUGS (4)
  1. HUMIRA [Suspect]
     Indication: RHEUMATOID ARTHRITIS
     Dates: start: 20130705, end: 20130901
  2. HUMIRA [Suspect]
     Dates: start: 20131101
  3. CITALOPRAM [Concomitant]
     Indication: DEPRESSION
     Route: 048
  4. TRIAZOLAM [Concomitant]
     Indication: INSOMNIA
     Route: 048

REACTIONS (9)
  - Diverticulitis [Recovered/Resolved]
  - Joint stiffness [Recovered/Resolved]
  - Arthralgia [Recovered/Resolved]
  - Arthralgia [Recovered/Resolved]
  - Gastrointestinal disorder [Unknown]
  - Post procedural complication [Unknown]
  - Intestinal obstruction [Unknown]
  - Enterovesical fistula [Unknown]
  - Postoperative adhesion [Unknown]
